FAERS Safety Report 4568402-0 (Version None)
Quarter: 2005Q1

REPORT INFORMATION
  Report Type: 
  Country: None (occurrence: None)
  Receive Date: 20050128
  Receipt Date: 20050120
  Transmission Date: 20050727
  Serious: Yes (Hospitalization)
  Sender: FDA-Public Use
  Company Number: 163-20785-04090561

PATIENT
  Age: 73 Year
  Sex: Female

DRUGS (19)
  1. THALOMID [Suspect]
     Indication: MULTIPLE MYELOMA
     Dosage: 200 MG, QD, ORAL
     Route: 048
     Dates: start: 20040604, end: 20040610
  2. DECADRON [Suspect]
     Indication: MULTIPLE MYELOMA
  3. AREDIA [Suspect]
     Indication: MULTIPLE MYELOMA
  4. PROCRIT (ERYTHROPOIETIN) [Concomitant]
  5. SINGULAIR [Concomitant]
  6. ZOLOFT [Concomitant]
  7. COZAAR [Concomitant]
  8. REGLAN [Concomitant]
  9. SEROQUEL [Concomitant]
  10. PROTONIX [Concomitant]
  11. LASIX (FOROSEMIDE) [Concomitant]
  12. COREG [Concomitant]
  13. ARICEPT (DONEFEZIL HYDROCHLORIDE) [Concomitant]
  14. ZYPREXA [Concomitant]
  15. LORTAB [Concomitant]
  16. MORPNINE (MORPHINE) [Concomitant]
  17. COMBIVENT [Concomitant]
  18. INSULIN [Concomitant]
  19. AMARYL [Concomitant]

REACTIONS (19)
  - ACCELERATED HYPERTENSION [None]
  - BRONCHOSPASM [None]
  - CARDIAC FAILURE CONGESTIVE [None]
  - CEREBROVASCULAR ACCIDENT [None]
  - CHEST PAIN [None]
  - CHRONIC OBSTRUCTIVE AIRWAYS DISEASE EXACERBATED [None]
  - COMA [None]
  - CONFUSIONAL STATE [None]
  - DIABETES MELLITUS INADEQUATE CONTROL [None]
  - MALIGNANT NEOPLASM PROGRESSION [None]
  - MENTAL STATUS CHANGES [None]
  - METABOLIC ACIDOSIS [None]
  - MULTIPLE MYELOMA [None]
  - NERVOUS SYSTEM DISORDER [None]
  - NEUROPATHY PERIPHERAL [None]
  - RENAL FAILURE ACUTE [None]
  - SEDATION [None]
  - TENDERNESS [None]
  - WHEEZING [None]
